FAERS Safety Report 20681002 (Version 1)
Quarter: 2022Q2

REPORT INFORMATION
  Report Type: Other
  Country: TH (occurrence: TH)
  Receive Date: 20220406
  Receipt Date: 20220406
  Transmission Date: 20220721
  Serious: Yes (Hospitalization, Other)
  Sender: FDA-Public Use
  Company Number: TH-Teikoku Pharma USA-TPU2022-00306

PATIENT
  Age: 32 Year
  Sex: Male
  Weight: 49 kg

DRUGS (3)
  1. LIDOCAINE [Suspect]
     Active Substance: LIDOCAINE
     Indication: Local anaesthesia
     Dosage: 2% PER 60 ML (0.21% LIDOCAINE SOLUTION)
     Route: 058
  2. LIDOCAINE [Suspect]
     Active Substance: LIDOCAINE
     Route: 058
  3. EPINEPHRINE [Suspect]
     Active Substance: EPINEPHRINE
     Indication: Local anaesthesia
     Dosage: 0.2MG IN 500 ML OF RINGER^S LACTATE
     Route: 058

REACTIONS (2)
  - Local anaesthetic systemic toxicity [Unknown]
  - Hypoxic-ischaemic encephalopathy [Not Recovered/Not Resolved]
